FAERS Safety Report 19115846 (Version 1)
Quarter: 2021Q2

REPORT INFORMATION
  Report Type: Spontaneous
  Country: US (occurrence: US)
  Receive Date: 20210409
  Receipt Date: 20210409
  Transmission Date: 20210717
  Serious: Yes (Other)
  Sender: FDA-Public Use
  Company Number: US-HIKMA PHARMACEUTICALS USA INC.-US-H14001-21-01719

PATIENT
  Age: 33 Year
  Sex: Male

DRUGS (11)
  1. MYCOPHENOLATE MOFETIL. [Suspect]
     Active Substance: MYCOPHENOLATE MOFETIL
     Route: 065
  2. MYCOPHENOLATE MOFETIL. [Suspect]
     Active Substance: MYCOPHENOLATE MOFETIL
     Indication: IMMUNOSUPPRESSANT DRUG THERAPY
     Dosage: 1000 MG BEFORE AND AFTER TRANSPLANT
     Route: 065
  3. MYCOPHENOLATE MOFETIL. [Suspect]
     Active Substance: MYCOPHENOLATE MOFETIL
     Route: 065
  4. ABACAVIR. [Concomitant]
     Active Substance: ABACAVIR
     Indication: HIV INFECTION
     Dosage: UNKNOWN
     Route: 065
  5. PREDNISONE. [Suspect]
     Active Substance: PREDNISONE
     Indication: IMMUNOSUPPRESSANT DRUG THERAPY
     Dosage: UNKNOWN, AFTER TRANSPLANT
     Route: 065
  6. SIROLIMUS. [Suspect]
     Active Substance: SIROLIMUS
     Indication: IMMUNOSUPPRESSANT DRUG THERAPY
     Dosage: 8 NG/ML
     Route: 065
  7. TACROLIMUS. [Suspect]
     Active Substance: TACROLIMUS
     Dosage: 15 NG/ML BEFORE AND AFTER TRANSPLANT
     Route: 065
  8. LAMIVUDINE. [Concomitant]
     Active Substance: LAMIVUDINE
     Indication: HIV INFECTION
     Dosage: UNKNOWN
     Route: 065
  9. TACROLIMUS. [Suspect]
     Active Substance: TACROLIMUS
     Indication: IMMUNOSUPPRESSANT DRUG THERAPY
     Dosage: 12 NG/ML BEFORE AND AFTER TRANSPLANT
     Route: 065
  10. SIROLIMUS. [Suspect]
     Active Substance: SIROLIMUS
     Dosage: 12 NG/ML
     Route: 065
  11. DOLUTEGRAVIR [Concomitant]
     Active Substance: DOLUTEGRAVIR
     Indication: HIV INFECTION
     Dosage: UNKNOWN
     Route: 065

REACTIONS (5)
  - HIV infection [Recovering/Resolving]
  - Kaposi^s sarcoma [Recovering/Resolving]
  - Condition aggravated [Recovering/Resolving]
  - Leukopenia [Unknown]
  - Transplant rejection [Recovering/Resolving]
